FAERS Safety Report 8200132-6 (Version None)
Quarter: 2012Q1

REPORT INFORMATION
  Report Type: 
  Country: None (occurrence: None)
  Receive Date: 20120309
  Receipt Date: 20120309
  Transmission Date: 20120608
  Serious: Yes (Other)
  Sender: FDA-Public Use
  Company Number: None

PATIENT
  Age: 71 Year
  Sex: Female
  Weight: 81.6475 kg

DRUGS (2)
  1. RECLAST [Suspect]
     Indication: OSTEOPOROSIS
     Dosage: UNSURE 1X FOR 2 YRS I.V.
     Route: 042
     Dates: start: 20100101
  2. RECLAST [Suspect]
     Indication: OSTEOPOROSIS
     Dosage: UNSURE 1X FOR 2 YRS I.V.
     Route: 042
     Dates: start: 20110101

REACTIONS (3)
  - INFLUENZA LIKE ILLNESS [None]
  - ILL-DEFINED DISORDER [None]
  - BONE PAIN [None]
